FAERS Safety Report 4657433-8 (Version None)
Quarter: 2005Q2

REPORT INFORMATION
  Report Type: 
  Country: None (occurrence: None)
  Receive Date: 20050510
  Receipt Date: 20050428
  Transmission Date: 20051028
  Serious: Yes (Other)
  Sender: FDA-Public Use
  Company Number: JP-NOVOPROD-243906

PATIENT
  Age: 4 Year
  Sex: Female
  Weight: 13 kg

DRUGS (1)
  1. NORDITROPIN [Suspect]
     Indication: CHONDRODYSTROPHY
     Dosage: 4.4 MG, WEEKLY
     Dates: start: 20040401, end: 20050222

REACTIONS (3)
  - SLEEP APNOEA SYNDROME [None]
  - SNORING [None]
  - TONSILLAR HYPERTROPHY [None]
